FAERS Safety Report 21915916 (Version 1)
Quarter: 2023Q1

REPORT INFORMATION
  Report Type: Spontaneous
  Country: KR (occurrence: KR)
  Receive Date: 20230126
  Receipt Date: 20230126
  Transmission Date: 20230418
  Serious: Yes (Hospitalization, Other)
  Sender: FDA-Public Use
  Company Number: KR-GLAXOSMITHKLINE-KR2023GSK010623

PATIENT

DRUGS (1)
  1. LAMOTRIGINE [Suspect]
     Active Substance: LAMOTRIGINE
     Indication: Product used for unknown indication
     Dosage: UNK

REACTIONS (3)
  - Drug reaction with eosinophilia and systemic symptoms [Unknown]
  - Alopecia [Not Recovered/Not Resolved]
  - Urticaria [Unknown]
